FAERS Safety Report 5737896-7 (Version None)
Quarter: 2008Q2

REPORT INFORMATION
  Report Type: 
  Country: None (occurrence: None)
  Receive Date: 20080514
  Receipt Date: 20080430
  Transmission Date: 20081010
  Serious: Yes (Hospitalization)
  Sender: FDA-Public Use
  Company Number: IN-AVENTIS-200814052GDDC

PATIENT
  Age: 54 Year
  Sex: Male
  Weight: 74.4 kg

DRUGS (3)
  1. CODE UNBROKEN [Suspect]
  2. METFORMIN HCL [Suspect]
     Indication: DIABETES MELLITUS
  3. CODE UNBROKEN [Suspect]
     Dates: start: 20080415, end: 20080417

REACTIONS (3)
  - ABDOMINAL PAIN [None]
  - FATIGUE [None]
  - VOMITING [None]
